FAERS Safety Report 11726754 (Version 9)
Quarter: 2018Q2

REPORT INFORMATION
  Report Type: Spontaneous
  Country: US (occurrence: US)
  Receive Date: 20151112
  Receipt Date: 20180517
  Transmission Date: 20180711
  Serious: Yes (Congenital Anomaly, Other)
  Sender: FDA-Public Use
  Company Number: PHEH2015US022860

PATIENT
  Sex: Female

DRUGS (3)
  1. ONDANSETRON HYDROCHLORIDE. [Suspect]
     Active Substance: ONDANSETRON HYDROCHLORIDE
     Indication: FOETAL EXPOSURE DURING PREGNANCY
     Dosage: MOTHER DOSE FREQUENCY: Q4H
     Route: 064
  2. ZOFRAN [Suspect]
     Active Substance: ONDANSETRON HYDROCHLORIDE
     Indication: FOETAL EXPOSURE DURING PREGNANCY
     Route: 064
  3. ONDANSETRON HYDROCHLORIDE. [Suspect]
     Active Substance: ONDANSETRON HYDROCHLORIDE
     Indication: FOETAL EXPOSURE DURING PREGNANCY
     Route: 064

REACTIONS (33)
  - Anhedonia [Unknown]
  - Anxiety [Unknown]
  - Injury [Unknown]
  - Dermatitis diaper [Unknown]
  - Pollakiuria [Unknown]
  - Fallot^s tetralogy [Unknown]
  - Hypoplastic right heart syndrome [Unknown]
  - Seizure [Unknown]
  - Rhinitis allergic [Unknown]
  - Constipation [Unknown]
  - Pyrexia [Unknown]
  - Scar [Unknown]
  - Asthma [Unknown]
  - Dermatitis contact [Unknown]
  - Sleep disorder [Unknown]
  - Gastroenteritis [Unknown]
  - Transposition of the great vessels [Unknown]
  - Multiple congenital abnormalities [Unknown]
  - Pain [Unknown]
  - Dysuria [Unknown]
  - Skin papilloma [Unknown]
  - Congenital anomaly [Unknown]
  - Croup infectious [Unknown]
  - Emotional distress [Unknown]
  - Rhinorrhoea [Unknown]
  - Diarrhoea [Unknown]
  - Jaundice neonatal [Unknown]
  - Vaginal infection [Unknown]
  - Upper respiratory tract infection [Unknown]
  - Hypoplastic left heart syndrome [Unknown]
  - Heart disease congenital [Unknown]
  - Foetal exposure during pregnancy [Unknown]
  - Viral infection [Unknown]
